FAERS Safety Report 9477846 (Version 1)
Quarter: 2013Q3

REPORT INFORMATION
  Report Type: Spontaneous
  Country: US (occurrence: None)
  Receive Date: 20130826
  Receipt Date: 20130826
  Transmission Date: 20140515
  Serious: No
  Sender: FDA-Public Use
  Company Number: None

PATIENT
  Age: 52 Year
  Sex: Female
  Weight: 63.5 kg

DRUGS (1)
  1. BUPROPION SR 150MG [Suspect]
     Indication: ANXIETY
     Dosage: 1 PILL TWICE DAILY TAKEN BY MOUTH
     Route: 048
     Dates: start: 20130802, end: 20130820

REACTIONS (3)
  - Anxiety [None]
  - Tension [None]
  - Irritability [None]
